FAERS Safety Report 21433966 (Version 1)
Quarter: 2022Q4

REPORT INFORMATION
  Report Type: Spontaneous
  Country: US (occurrence: US)
  Receive Date: 20221010
  Receipt Date: 20221010
  Transmission Date: 20230113
  Serious: No
  Sender: FDA-Public Use
  Company Number: US-BIOGEN-2022BI01160007

PATIENT
  Sex: Female

DRUGS (8)
  1. TECFIDERA [Suspect]
     Active Substance: DIMETHYL FUMARATE
     Indication: Multiple sclerosis
     Route: 050
     Dates: start: 2019
  2. AUBAGIO [Concomitant]
     Active Substance: TERIFLUNOMIDE
     Route: 050
  3. MODAFINIL [Concomitant]
     Active Substance: MODAFINIL
     Route: 050
  4. LEXAPRO [Concomitant]
     Active Substance: ESCITALOPRAM OXALATE
     Route: 050
  5. PROVIGIL [Concomitant]
     Active Substance: MODAFINIL
     Route: 050
  6. LYRICA [Concomitant]
     Active Substance: PREGABALIN
     Route: 050
  7. ALDACTONE [Concomitant]
     Active Substance: SPIRONOLACTONE
     Route: 050
  8. CHOLECALCIFEROL [Concomitant]
     Active Substance: CHOLECALCIFEROL
     Route: 050

REACTIONS (1)
  - Gastrointestinal pain [Unknown]
